FAERS Safety Report 4568207-0 (Version None)
Quarter: 2005Q1

REPORT INFORMATION
  Report Type: 
  Country: None (occurrence: None)
  Receive Date: 20050131
  Receipt Date: 20040616
  Transmission Date: 20050727
  Serious: Yes (Hospitalization)
  Sender: FDA-Public Use
  Company Number: MSTR-NO-0201C-0515

PATIENT
  Age: 74 Year
  Sex: Male
  Weight: 66 kg

DRUGS (3)
  1. METASTRON [Suspect]
     Indication: METASTATIC PAIN
     Dosage: 126 MBQ, SINGLE DOSE, I.V.
     Route: 042
     Dates: start: 20011002, end: 20011002
  2. MORPHINE [Concomitant]
  3. DEXAMETHASONE [Concomitant]

REACTIONS (3)
  - ANAEMIA [None]
  - ANOREXIA [None]
  - PAIN [None]
